FAERS Safety Report 23600147 (Version 1)
Quarter: 2024Q1

REPORT INFORMATION
  Report Type: Spontaneous
  Country: NL (occurrence: NL)
  Receive Date: 20240306
  Receipt Date: 20240306
  Transmission Date: 20240410
  Serious: Yes (Other)
  Sender: FDA-Public Use
  Company Number: NL-MYLANLABS-2024M1019814

PATIENT
  Age: 50 Year
  Sex: Male

DRUGS (7)
  1. PREDNISOLONE [Suspect]
     Active Substance: PREDNISOLONE
     Indication: Immunosuppressant drug therapy
     Dosage: UNK
     Route: 065
  2. MYCOPHENOLATE MOFETIL [Suspect]
     Active Substance: MYCOPHENOLATE MOFETIL
     Indication: Immunosuppressant drug therapy
     Dosage: UNK
     Route: 065
  3. ITRACONAZOLE [Interacting]
     Active Substance: ITRACONAZOLE
     Indication: Fungal skin infection
     Dosage: 200 MILLIGRAM, TID, EMULSION (RECEIVED THREE TIMES DAILY)
     Route: 065
  4. ITRACONAZOLE [Interacting]
     Active Substance: ITRACONAZOLE
     Dosage: 200 MILLIGRAM, BID, EMULSION
     Route: 065
  5. VORICONAZOLE [Suspect]
     Active Substance: VORICONAZOLE
     Indication: Fungal skin infection
     Dosage: 200 MILLIGRAM, BID, RECEIVED FOR ONE MONTH
     Route: 048
  6. TACROLIMUS [Interacting]
     Active Substance: TACROLIMUS
     Indication: Immunosuppressant drug therapy
     Dosage: 1 MILLIGRAM
     Route: 065
  7. TACROLIMUS [Interacting]
     Active Substance: TACROLIMUS
     Dosage: 0.5 MILLIGRAM, QOD, RECEIVED ON ALTERNATE DAYS
     Route: 065

REACTIONS (9)
  - Mycetoma mycotic [Recovered/Resolved]
  - Fungal skin infection [Recovered/Resolved]
  - Bone lesion [Recovered/Resolved]
  - Infection reactivation [Recovered/Resolved]
  - Labelled drug-drug interaction medication error [Unknown]
  - Diarrhoea [Unknown]
  - Nausea [Unknown]
  - Dizziness [Unknown]
  - Visual impairment [Unknown]
